FAERS Safety Report 7493319-1 (Version None)
Quarter: 2011Q2

REPORT INFORMATION
  Report Type: 
  Country: None (occurrence: None)
  Receive Date: 20110520
  Receipt Date: 20110419
  Transmission Date: 20111010
  Serious: Yes (Other)
  Sender: FDA-Public Use
  Company Number: US-BAYER-201039929NA

PATIENT
  Age: 29 Year
  Sex: Female
  Weight: 86.168 kg

DRUGS (5)
  1. YASMIN [Suspect]
     Indication: ACNE
  2. SPIRONOLACTONE [Concomitant]
     Indication: ACNE
     Dosage: UNK
     Dates: start: 20040301, end: 20101201
  3. YASMIN [Suspect]
     Indication: ORAL CONTRACEPTION
     Dosage: UNK UNK, UNK
     Route: 048
     Dates: start: 20040301, end: 20080901
  4. DROSPIRENONE AND ETHINYL ESTRADIOL [Suspect]
     Indication: ORAL CONTRACEPTION
     Dosage: UNK UNK, UNK
     Route: 048
     Dates: start: 20040301, end: 20080901
  5. DROSPIRENONE AND ETHINYL ESTRADIOL [Suspect]
     Indication: ACNE

REACTIONS (3)
  - CHOLECYSTITIS [None]
  - GALLBLADDER DISORDER [None]
  - PAIN [None]
